FAERS Safety Report 23105291 (Version 1)
Quarter: 2023Q4

REPORT INFORMATION
  Report Type: Report from Study
  Country: CO (occurrence: CO)
  Receive Date: 20231025
  Receipt Date: 20231025
  Transmission Date: 20240110
  Serious: Yes (Hospitalization)
  Sender: FDA-Public Use
  Company Number: CO-ELI_LILLY_AND_COMPANY-CO202310012624

PATIENT
  Sex: Female

DRUGS (1)
  1. FORTEO [Suspect]
     Active Substance: TERIPARATIDE
     Indication: Osteoporosis
     Dosage: 20 UG, DAILY
     Route: 058
     Dates: start: 20220805

REACTIONS (6)
  - Skin discolouration [Unknown]
  - Haemorrhage [Unknown]
  - Osteomyelitis [Unknown]
  - Pain in extremity [Unknown]
  - Peripheral swelling [Recovering/Resolving]
  - Skin discolouration [Recovering/Resolving]
